FAERS Safety Report 12609701 (Version 1)
Quarter: 2016Q3

REPORT INFORMATION
  Report Type: Spontaneous
  Country: US (occurrence: None)
  Receive Date: 20160729
  Receipt Date: 20160729
  Transmission Date: 20161109
  Serious: No
  Sender: FDA-Public Use
  Company Number: None

PATIENT
  Age: 39 Year
  Sex: Female

DRUGS (5)
  1. NEURONTIN [Concomitant]
     Active Substance: GABAPENTIN
  2. AMPYRA [Suspect]
     Active Substance: DALFAMPRIDINE
     Indication: MULTIPLE SCLEROSIS
     Route: 048
     Dates: start: 201401
  3. GLATOPA [Concomitant]
     Active Substance: GLATIRAMER ACETATE
  4. PROVIGIL [Concomitant]
     Active Substance: MODAFINIL
  5. SYMMETREL [Concomitant]
     Active Substance: AMANTADINE HYDROCHLORIDE

REACTIONS (4)
  - Platelet count increased [None]
  - Protein urine [None]
  - Laboratory test abnormal [None]
  - Urine leukocyte esterase positive [None]

NARRATIVE: CASE EVENT DATE: 20160624
